FAERS Safety Report 19435724 (Version 1)
Quarter: 2021Q2

REPORT INFORMATION
  Report Type: Spontaneous
  Country: US (occurrence: US)
  Receive Date: 20210618
  Receipt Date: 20210618
  Transmission Date: 20210717
  Serious: Yes (Hospitalization)
  Sender: FDA-Public Use
  Company Number: US-ALKERMES INC.-ALK-2021-003130

PATIENT
  Age: 54 Year
  Sex: Female

DRUGS (2)
  1. ARISTADA [Suspect]
     Active Substance: ARIPIPRAZOLE LAUROXIL
     Dosage: 882 MILLIGRAM, QMO
     Route: 030
     Dates: start: 2016, end: 2016
  2. ARISTADA [Suspect]
     Active Substance: ARIPIPRAZOLE LAUROXIL
     Indication: PRODUCT USED FOR UNKNOWN INDICATION
     Dosage: 1064 MILLIGRAM, Q2MO
     Route: 030
     Dates: start: 2018

REACTIONS (3)
  - Coma [Recovered/Resolved]
  - Blood potassium decreased [Unknown]
  - Blood sodium decreased [Unknown]
